FAERS Safety Report 10177912 (Version 1)
Quarter: 2014Q2

REPORT INFORMATION
  Report Type: Spontaneous
  Country: CN (occurrence: CN)
  Receive Date: 20140516
  Receipt Date: 20140516
  Transmission Date: 20141212
  Serious: Yes (Hospitalization)
  Sender: FDA-Public Use
  Company Number: PHHY2014CN059183

PATIENT
  Age: 41 Year
  Sex: Male
  Weight: 51 kg

DRUGS (1)
  1. VOTALIN [Suspect]
     Indication: GOUT
     Dosage: 0.1 DF, TWICE DAILY
     Route: 061
     Dates: start: 20130514, end: 20130516

REACTIONS (3)
  - Rash maculo-papular [Recovered/Resolved]
  - Generalised erythema [Recovered/Resolved]
  - Pruritus [Recovered/Resolved]
